FAERS Safety Report 6906365-0 (Version None)
Quarter: 2010Q3

REPORT INFORMATION
  Report Type: 
  Country: None (occurrence: None)
  Receive Date: 20100804
  Receipt Date: 20100727
  Transmission Date: 20110219
  Serious: Yes (Hospitalization)
  Sender: FDA-Public Use
  Company Number: A0867111A

PATIENT
  Age: 68 Year
  Sex: Female
  Weight: 139.5 kg

DRUGS (11)
  1. AVANDIA [Suspect]
  2. LANTUS [Concomitant]
  3. GABAPENTIN [Concomitant]
  4. IBUPROFEN [Concomitant]
  5. PROZAC [Concomitant]
  6. LISINOPRIL [Concomitant]
  7. NORVASC [Concomitant]
  8. ZOCOR [Concomitant]
  9. ASPIRIN [Concomitant]
  10. METOPROLOL [Concomitant]
  11. GLUCOPHAGE [Concomitant]

REACTIONS (2)
  - ATRIAL FIBRILLATION [None]
  - CARDIAC FAILURE CONGESTIVE [None]
